FAERS Safety Report 5126828-0 (Version None)
Quarter: 2006Q4

REPORT INFORMATION
  Report Type: 
  Country: None (occurrence: None)
  Receive Date: 20061013
  Receipt Date: 20060823
  Transmission Date: 20070319
  Serious: Yes (Hospitalization)
  Sender: FDA-Public Use
  Company Number: US-BAYER-200615216BWH

PATIENT
  Age: 74 Year
  Sex: Male
  Weight: 84 kg

DRUGS (16)
  1. SORAFENIB OR PLACEBO [Suspect]
     Indication: METASTATIC MALIGNANT MELANOMA
     Dosage: TOTAL DAILY DOSE: 800 MG  UNIT DOSE: 200 MG
     Route: 048
     Dates: start: 20050901, end: 20060804
  2. SORAFENIB OR PLACEBO [Suspect]
     Dosage: TOTAL DAILY DOSE: 400 MG  UNIT DOSE: 200 MG
     Route: 048
     Dates: start: 20060829
  3. DTIC-DOME [Suspect]
     Indication: METASTATIC MALIGNANT MELANOMA
     Dosage: UNIT DOSE: 1000 MG/M2
     Route: 042
     Dates: start: 20050901
  4. DTIC-DOME [Suspect]
     Route: 042
     Dates: start: 20060718
  5. DTIC-DOME [Suspect]
     Route: 042
     Dates: start: 20060829
  6. LEXAPRO [Concomitant]
     Indication: DEPRESSION
     Route: 048
     Dates: start: 20060627
  7. LOMOTIL [Concomitant]
     Indication: DIARRHOEA
     Dosage: TOTAL DAILY DOSE: 15 MG
     Route: 048
     Dates: start: 20060516
  8. FLOMAX [Concomitant]
     Indication: PROSTATE EXAMINATION ABNORMAL
     Dosage: TOTAL DAILY DOSE: 0.4 MG
     Route: 048
     Dates: start: 20060608
  9. AMBIEN [Concomitant]
     Indication: INSOMNIA
     Route: 048
     Dates: start: 20060608
  10. IMODIUM [Concomitant]
     Indication: DIARRHOEA
     Route: 048
     Dates: start: 20060426
  11. CENTRUM [Concomitant]
     Indication: MEDICAL DIET
     Route: 048
     Dates: start: 20060401
  12. AFRIN [Concomitant]
     Route: 045
     Dates: start: 20050922
  13. ASPIRIN [Concomitant]
     Indication: CORONARY ARTERY DISEASE
     Dosage: TOTAL DAILY DOSE: 325 MG
     Route: 048
     Dates: start: 19970101
  14. ANTIVERT [Concomitant]
     Route: 048
     Dates: start: 20020101
  15. VASOTEC [Concomitant]
     Indication: HYPERTENSION
     Dosage: TOTAL DAILY DOSE: 40 MG
     Route: 048
     Dates: start: 19990101
  16. ZOCOR [Concomitant]
     Indication: HYPERLIPIDAEMIA
     Route: 048
     Dates: start: 19970101

REACTIONS (4)
  - ABDOMINAL PAIN [None]
  - ANXIETY [None]
  - CHEST PAIN [None]
  - DIARRHOEA [None]
